FAERS Safety Report 8352973-2 (Version None)
Quarter: 2012Q2

REPORT INFORMATION
  Report Type: 
  Country: None (occurrence: None)
  Receive Date: 20120511
  Receipt Date: 20110331
  Transmission Date: 20120825
  Serious: No
  Sender: FDA-Public Use
  Company Number: US-GLAXOSMITHKLINE-A0920877A

PATIENT
  Age: 60 Year
  Sex: Female

DRUGS (2)
  1. DYNACIRC CR [Suspect]
     Indication: HYPERTENSION
     Dosage: 10MG PER DAY
     Route: 048
     Dates: start: 20060101
  2. BENICAR [Concomitant]

REACTIONS (2)
  - LENTIGO [None]
  - RASH MACULAR [None]
